FAERS Safety Report 8937905 (Version 1)
Quarter: 2012Q4

REPORT INFORMATION
  Report Type: Spontaneous
  Country: US (occurrence: None)
  Receive Date: 20121123
  Receipt Date: 20121123
  Transmission Date: 20130627
  Serious: Yes (Hospitalization)
  Sender: FDA-Public Use
  Company Number: 2012CT000025

PATIENT
  Age: 64 Year
  Sex: Female

DRUGS (10)
  1. MIFEPRISTONE [Suspect]
     Indication: CUSHING^S SYNDROME
     Dates: start: 20120920
  2. HYDRLCHLOROTHIAZIDE [Concomitant]
  3. LEVEMIR [Concomitant]
  4. METFORMIN [Concomitant]
  5. DIOVAN [Concomitant]
  6. DOXAZOSIN [Concomitant]
  7. PRAVASTATIN [Concomitant]
  8. LEVOTHYROXINE [Concomitant]
  9. CARBERGOLINE [Concomitant]
  10. HUMALOG [Concomitant]

REACTIONS (3)
  - Cardiac failure congestive [None]
  - Oedema [None]
  - Dyspnoea [None]
